FAERS Safety Report 9982560 (Version 1)
Quarter: 2014Q1

REPORT INFORMATION
  Report Type: Report from Study
  Country: US (occurrence: US)
  Receive Date: 20140307
  Receipt Date: 20140307
  Transmission Date: 20141002
  Serious: Yes (Other)
  Sender: FDA-Public Use
  Company Number: US-ABBVIE-13P-163-1179192-00

PATIENT
  Age: 68 Year
  Sex: 0

DRUGS (4)
  1. HUMIRA [Suspect]
     Indication: RHEUMATOID ARTHRITIS
     Dates: end: 201301
  2. UNKNOWN MEDICATION [Concomitant]
     Indication: HYPERTENSION
  3. FOLIC ACID [Concomitant]
     Indication: PRODUCT USED FOR UNKNOWN INDICATION
  4. MULTIVITAMIN [Concomitant]
     Indication: PRODUCT USED FOR UNKNOWN INDICATION

REACTIONS (11)
  - Breast cancer [Not Recovered/Not Resolved]
  - Upper respiratory tract infection [Unknown]
  - Upper respiratory tract infection [Unknown]
  - Upper respiratory tract infection [Unknown]
  - Upper respiratory tract infection [Unknown]
  - Pyrexia [Unknown]
  - Pain [Unknown]
  - Speech disorder [Unknown]
  - Upper respiratory tract infection [Unknown]
  - Joint swelling [Unknown]
  - Pain [Unknown]
